FAERS Safety Report 25328016 (Version 1)
Quarter: 2025Q2

REPORT INFORMATION
  Report Type: Spontaneous
  Country: FR (occurrence: FR)
  Receive Date: 20250518
  Receipt Date: 20250518
  Transmission Date: 20250716
  Serious: Yes (Other)
  Sender: DEXCEL
  Company Number: None

PATIENT
  Age: 19 Year
  Sex: Male

DRUGS (8)
  1. ALCOHOL\CHLORHEXIDINE GLUCONATE [Suspect]
     Active Substance: ALCOHOL\CHLORHEXIDINE GLUCONATE
     Indication: Infection prophylaxis
     Route: 040
     Dates: start: 20231031, end: 20231031
  2. PROPOFOL [Suspect]
     Active Substance: PROPOFOL
     Indication: General anaesthesia
     Route: 040
     Dates: start: 20231031, end: 20231031
  3. CISATRACURIUM [Suspect]
     Active Substance: CISATRACURIUM
     Indication: General anaesthesia
     Route: 040
     Dates: start: 20231031, end: 20231031
  4. KETAMINE [Suspect]
     Active Substance: KETAMINE
     Indication: General anaesthesia
     Route: 040
     Dates: start: 20231031, end: 20231031
  5. SUFENTANIL CITRATE [Suspect]
     Active Substance: SUFENTANIL CITRATE
     Indication: General anaesthesia
     Route: 040
     Dates: start: 20231031, end: 20231031
  6. DEXAMETHASONE [Suspect]
     Active Substance: DEXAMETHASONE
     Indication: Prophylaxis of nausea and vomiting
     Route: 040
     Dates: start: 20231031, end: 20231031
  7. XYLOCAINE [Suspect]
     Active Substance: LIDOCAINE HYDROCHLORIDE
     Indication: Epidural anaesthesia
     Route: 008
     Dates: start: 20231031, end: 20231031
  8. RINGER LACTATE FRESENIUS [Concomitant]
     Route: 040
     Dates: start: 20231031, end: 20231031

REACTIONS (2)
  - Urticaria [Recovered/Resolved]
  - Hypotension [Recovered/Resolved]

NARRATIVE: CASE EVENT DATE: 20231031
